APPROVED DRUG PRODUCT: BUTALBITAL AND ACETAMINOPHEN
Active Ingredient: ACETAMINOPHEN; BUTALBITAL
Strength: 300MG;50MG
Dosage Form/Route: TABLET;ORAL
Application: A214955 | Product #001 | TE Code: AA
Applicant: NE RX PHARMA LLC
Approved: Aug 16, 2022 | RLD: No | RS: No | Type: RX